FAERS Safety Report 4931817-2 (Version None)
Quarter: 2006Q1

REPORT INFORMATION
  Report Type: 
  Country: None (occurrence: None)
  Receive Date: 20060303
  Receipt Date: 20060302
  Transmission Date: 20060701
  Serious: Yes (Other)
  Sender: FDA-Public Use
  Company Number: GB-NOVOPROD-251273

PATIENT
  Age: 49 Year
  Sex: Male

DRUGS (1)
  1. HUMAN MIXTARD 30 HM(GE) [Suspect]
     Indication: DIABETES MELLITUS
     Dosage: 28 IU, QD
     Route: 058
     Dates: start: 20031002, end: 20060114

REACTIONS (2)
  - ANXIETY [None]
  - DEPRESSION [None]
